FAERS Safety Report 19937964 (Version 1)
Quarter: 2021Q4

REPORT INFORMATION
  Report Type: Spontaneous
  Country: US (occurrence: US)
  Receive Date: 20211011
  Receipt Date: 20211011
  Transmission Date: 20220303
  Serious: Yes (Other)
  Sender: FDA-Public Use
  Company Number: US-ROCHE-2841345

PATIENT
  Age: 26 Year
  Sex: Male
  Weight: 31.8 kg

DRUGS (14)
  1. EVRYSDI [Suspect]
     Active Substance: RISDIPLAM
     Indication: Spinal muscular atrophy
     Route: 048
     Dates: start: 20201223
  2. MONTELUKAST [Concomitant]
     Active Substance: MONTELUKAST SODIUM
     Indication: Hypersensitivity
     Dates: start: 20200603
  3. ALBUTEROL [Concomitant]
     Active Substance: ALBUTEROL
     Indication: Wheezing
     Dosage: Q4H PRN
     Dates: start: 20200603
  4. ALBUTEROL [Concomitant]
     Active Substance: ALBUTEROL
     Indication: Cough
  5. CLOTRIMAZOLE [Concomitant]
     Active Substance: CLOTRIMAZOLE
     Dates: start: 20200603
  6. CLONAZEPAM [Concomitant]
     Active Substance: CLONAZEPAM
     Route: 048
     Dates: start: 20200518
  7. CHOLECALCIFEROL [Concomitant]
     Active Substance: CHOLECALCIFEROL
     Dosage: 800 UNITS
     Route: 048
     Dates: start: 20191204
  8. FLUTICASONE [Concomitant]
     Active Substance: FLUTICASONE
     Dates: start: 20170216
  9. LEVALBUTEROL [Concomitant]
     Active Substance: LEVALBUTEROL
     Dates: start: 20170117
  10. CALCIUM CARBONATE [Concomitant]
     Active Substance: CALCIUM CARBONATE
     Route: 048
     Dates: start: 20170104
  11. SODIUM CHLORIDE [Concomitant]
     Active Substance: SODIUM CHLORIDE
  12. KETOCONAZOLE [Concomitant]
     Active Substance: KETOCONAZOLE
     Route: 061
     Dates: start: 20150626
  13. ESCITALOPRAM [Concomitant]
     Active Substance: ESCITALOPRAM OXALATE
  14. MAGNESIUM HYDROXIDE [Concomitant]
     Active Substance: MAGNESIUM HYDROXIDE
     Route: 048
     Dates: start: 20150624

REACTIONS (1)
  - Liver function test increased [Not Recovered/Not Resolved]

NARRATIVE: CASE EVENT DATE: 20210514
